FAERS Safety Report 11937727 (Version 1)
Quarter: 2016Q1

REPORT INFORMATION
  Report Type: Spontaneous
  Country: US (occurrence: None)
  Receive Date: 20160120
  Receipt Date: 20160120
  Transmission Date: 20160526
  Serious: Yes (Hospitalization)
  Sender: FDA-Public Use
  Company Number: None

PATIENT
  Age: 44 Year
  Sex: Male
  Weight: 94.5 kg

DRUGS (3)
  1. THYMOGLOBULIN [Suspect]
     Active Substance: LAPINE T-LYMPHOCYTE IMMUNE GLOBULIN
  2. MYFORTIC [Suspect]
     Active Substance: MYCOPHENOLATE SODIUM
  3. TACROLIMUS. [Suspect]
     Active Substance: TACROLIMUS

REACTIONS (5)
  - Abdominal pain [None]
  - Secretion discharge [None]
  - Post procedural complication [None]
  - Flank pain [None]
  - Chills [None]

NARRATIVE: CASE EVENT DATE: 20160117
